FAERS Safety Report 9270388 (Version 7)
Quarter: 2015Q3

REPORT INFORMATION
  Report Type: Report from Study
  Country: DE (occurrence: DE)
  Receive Date: 20130503
  Receipt Date: 20150917
  Transmission Date: 20151125
  Serious: Yes (Hospitalization, Other)
  Sender: FDA-Public Use
  Company Number: DE-INCYTE CORPORATION-2013IN000893

PATIENT
  Age: 76 Year
  Sex: Male
  Weight: 75 kg

DRUGS (18)
  1. AVALOX [Concomitant]
     Active Substance: MOXIFLOXACIN HYDROCHLORIDE
     Indication: LUNG INFILTRATION
     Dosage: UNK
     Dates: start: 20141203, end: 20150113
  2. INCB018424 [Suspect]
     Active Substance: RUXOLITINIB
     Dosage: 30 MG, QD
     Route: 048
     Dates: start: 20130304, end: 20130311
  3. NEORECORMON [Concomitant]
     Active Substance: ERYTHROPOIETIN
     Dosage: 30000 IU, QW ( PER WEEK)
     Route: 065
     Dates: start: 20131015
  4. NEORECORMON [Concomitant]
     Active Substance: ERYTHROPOIETIN
     Indication: PRODUCT USED FOR UNKNOWN INDICATION
     Dosage: 30000 IU, (EVERY 10 DAYS)
     Route: 058
     Dates: start: 20130506, end: 20141015
  5. INCB018424 [Suspect]
     Active Substance: RUXOLITINIB
     Dosage: 40 MG, QD
     Route: 048
     Dates: start: 20130218, end: 20130303
  6. INCB018424 [Suspect]
     Active Substance: RUXOLITINIB
     Dosage: 10 MG, QD
     Route: 048
     Dates: start: 20130312, end: 20130318
  7. INCB018424 [Suspect]
     Active Substance: RUXOLITINIB
     Dosage: 5 MG, QD
     Route: 048
     Dates: start: 20131030
  8. NEORECORMON [Concomitant]
     Active Substance: ERYTHROPOIETIN
     Indication: ANAEMIA
     Dosage: 30000 IU, (EVERY 10 DAYS)
     Route: 058
     Dates: start: 20130506, end: 20141015
  9. NOVAMINSULFON [Concomitant]
     Active Substance: METAMIZOLE
     Indication: BACK PAIN
     Dosage: 1000 MG
     Route: 065
     Dates: start: 20130129, end: 20130215
  10. INCB018424 [Suspect]
     Active Substance: RUXOLITINIB
     Dosage: 10 MG, QD
     Route: 048
     Dates: start: 20130325, end: 20140506
  11. EFUDIX [Concomitant]
     Active Substance: FLUOROURACIL
     Indication: HYPERKERATOSIS
     Dosage: UNK
     Route: 065
     Dates: start: 20131022
  12. AVALOX [Concomitant]
     Active Substance: MOXIFLOXACIN HYDROCHLORIDE
     Indication: RESPIRATORY TRACT INFECTION
     Dosage: 400 MG, UNK
     Route: 065
     Dates: start: 20141203, end: 20141209
  13. AZITHROMYCINE [Concomitant]
     Active Substance: AZITHROMYCIN DIHYDRATE
     Indication: SPUTUM PURULENT
     Dosage: 500
     Route: 065
     Dates: start: 20150218, end: 20150220
  14. INCB018424 [Suspect]
     Active Substance: RUXOLITINIB
     Indication: MYELOFIBROSIS
     Dosage: 30 MG, QD
     Route: 048
     Dates: start: 20130211
  15. ALLOPURINOL. [Concomitant]
     Active Substance: ALLOPURINOL
     Indication: RENAL COLIC
     Dosage: 150 MG
     Route: 065
     Dates: start: 200907
  16. INCB018424 [Suspect]
     Active Substance: RUXOLITINIB
     Dosage: 5 MG, QD
     Route: 048
     Dates: start: 20130507, end: 20130529
  17. INCB018424 [Suspect]
     Active Substance: RUXOLITINIB
     Dosage: 10 MG, QD
     Route: 048
     Dates: start: 20130530, end: 20131030
  18. AVALOX [Concomitant]
     Active Substance: MOXIFLOXACIN HYDROCHLORIDE
     Dosage: 400 OT
     Route: 065
     Dates: start: 20150107, end: 20150113

REACTIONS (2)
  - Aortic stenosis [Recovering/Resolving]
  - Coronary artery disease [Recovering/Resolving]

NARRATIVE: CASE EVENT DATE: 20130422
